FAERS Safety Report 16246346 (Version 1)
Quarter: 2019Q2

REPORT INFORMATION
  Report Type: Report from Study
  Country: BR (occurrence: BR)
  Receive Date: 20190426
  Receipt Date: 20190426
  Transmission Date: 20190711
  Serious: Yes (Other)
  Sender: FDA-Public Use
  Company Number: BR-ELI_LILLY_AND_COMPANY-BR201904012367

PATIENT
  Age: 78 Year
  Sex: Female

DRUGS (1)
  1. CETUXIMAB. [Suspect]
     Active Substance: CETUXIMAB
     Indication: RECTAL CANCER
     Dosage: UNK, UNKNOWN
     Route: 042
     Dates: start: 20190412

REACTIONS (5)
  - Muscular weakness [Recovering/Resolving]
  - Hypersensitivity [Recovering/Resolving]
  - Nausea [Recovering/Resolving]
  - Chest pain [Recovering/Resolving]
  - Skin reaction [Recovering/Resolving]

NARRATIVE: CASE EVENT DATE: 20190412
